FAERS Safety Report 19364908 (Version 1)
Quarter: 2021Q2

REPORT INFORMATION
  Report Type: Spontaneous
  Country: GB (occurrence: GB)
  Receive Date: 20210602
  Receipt Date: 20210602
  Transmission Date: 20210717
  Serious: Yes (Other)
  Sender: FDA-Public Use
  Company Number: GB-ORGANON-O2106GBR000072

PATIENT
  Sex: Female

DRUGS (1)
  1. NEXPLANON [Suspect]
     Active Substance: ETONOGESTREL
     Dosage: 1 IMPLANT (68MG), ONCE
     Route: 059

REACTIONS (4)
  - Unintended pregnancy [Recovered/Resolved]
  - Abortion spontaneous [Unknown]
  - Pregnancy with implant contraceptive [Recovered/Resolved]
  - Drug ineffective [Unknown]
